FAERS Safety Report 10222563 (Version 1)
Quarter: 2014Q2

REPORT INFORMATION
  Report Type: Spontaneous
  Country: US (occurrence: US)
  Receive Date: 20140606
  Receipt Date: 20140606
  Transmission Date: 20141212
  Serious: No
  Sender: FDA-Public Use
  Company Number: US-MYLANLABS-2014S1002385

PATIENT
  Sex: Female
  Weight: 88 kg

DRUGS (4)
  1. DOXEPIN HYDROCHLORIDE CAPSULES, USP [Suspect]
     Indication: INSOMNIA
     Dosage: 1-2 CAPSULES AS NEEDED QHS
     Route: 048
     Dates: start: 201312
  2. DOXEPIN HYDROCHLORIDE CAPSULES, USP [Suspect]
     Indication: OFF LABEL USE
     Dosage: 1-2 CAPSULES AS NEEDED QHS
     Route: 048
     Dates: start: 201312
  3. NEURONTIN [Concomitant]
     Route: 048
  4. KLONOPIN [Concomitant]
     Route: 048

REACTIONS (6)
  - Drug ineffective for unapproved indication [Not Recovered/Not Resolved]
  - Insomnia [Not Recovered/Not Resolved]
  - Weight increased [Not Recovered/Not Resolved]
  - Toothache [Not Recovered/Not Resolved]
  - Increased appetite [Not Recovered/Not Resolved]
  - Alopecia [Not Recovered/Not Resolved]
